FAERS Safety Report 5223835-4 (Version None)
Quarter: 2007Q1

REPORT INFORMATION
  Report Type: 
  Country: None (occurrence: None)
  Receive Date: 20070130
  Receipt Date: 20060927
  Transmission Date: 20070707
  Serious: No
  Sender: FDA-Public Use
  Company Number: US-BRISTOL-MYERS SQUIBB COMPANY-13523493

PATIENT
  Age: 79 Year
  Sex: Male

DRUGS (1)
  1. LISODREN TABS 500 MG [Suspect]
     Dates: start: 20060101, end: 20060901

REACTIONS (2)
  - DIARRHOEA [None]
  - WHITE BLOOD CELL COUNT DECREASED [None]
